FAERS Safety Report 15317970 (Version 1)
Quarter: 2018Q3

REPORT INFORMATION
  Report Type: Spontaneous
  Country: FR (occurrence: FR)
  Receive Date: 20180824
  Receipt Date: 20180824
  Transmission Date: 20181010
  Serious: Yes (Other)
  Sender: FDA-Public Use
  Company Number: PHHY2018FR077770

PATIENT
  Age: 30 Year
  Sex: Female
  Weight: 63 kg

DRUGS (5)
  1. FOLIC ACID. [Suspect]
     Active Substance: FOLIC ACID
     Indication: VITAMIN SUPPLEMENTATION
     Dosage: 0.4 MG
     Route: 048
  2. MENOPUR [Suspect]
     Active Substance: FOLLITROPIN\LUTEINIZING HORMONE
     Indication: ASSISTED FERTILISATION
     Dosage: 150 IU
     Route: 058
     Dates: start: 20171202, end: 20171212
  3. GANIRELIX [Suspect]
     Active Substance: GANIRELIX
     Indication: HORMONE THERAPY
     Dosage: 0.25 MG
     Route: 058
     Dates: start: 20171208, end: 20171212
  4. PROVAMES [Suspect]
     Active Substance: ESTRADIOL
     Indication: HORMONE THERAPY
     Dosage: 2 MG
     Route: 048
     Dates: start: 20171124, end: 20171201
  5. DECAPEPTYL [Suspect]
     Active Substance: TRIPTORELIN
     Indication: HORMONE THERAPY
     Dosage: 0.2 MG
     Route: 058
     Dates: start: 20171213, end: 20171213

REACTIONS (2)
  - Incorrect dose administered [Recovered/Resolved]
  - Ovarian hyperstimulation syndrome [Recovered/Resolved]

NARRATIVE: CASE EVENT DATE: 20171213
